FAERS Safety Report 8608914-3 (Version None)
Quarter: 2012Q3

REPORT INFORMATION
  Report Type: 
  Country: None (occurrence: None)
  Receive Date: 20120821
  Receipt Date: 20120806
  Transmission Date: 20120928
  Serious: Yes (Hospitalization)
  Sender: FDA-Public Use
  Company Number: GB-WATSON-2012-14327

PATIENT
  Age: 70 Year
  Sex: Male

DRUGS (1)
  1. METFORMIN HYDROCHLORIDE [Suspect]
     Indication: TYPE 2 DIABETES MELLITUS
     Dosage: UNK
     Route: 048

REACTIONS (9)
  - ATRIAL FIBRILLATION [None]
  - SUICIDE ATTEMPT [None]
  - OVERDOSE [None]
  - VOMITING [None]
  - AGITATION [None]
  - LACTIC ACIDOSIS [None]
  - RENAL INJURY [None]
  - CONFUSIONAL STATE [None]
  - ABDOMINAL PAIN [None]
